FAERS Safety Report 8839283 (Version 1)
Quarter: 2012Q4

REPORT INFORMATION
  Report Type: 
  Country: US (occurrence: US)
  Receive Date: 20121015
  Receipt Date: 20121015
  Transmission Date: 20130627
  Serious: Yes (Hospitalization)
  Sender: FDA-Public Use
  Company Number: US-JNJFOC-20121004871

PATIENT
  Age: 55 Year
  Sex: Female

DRUGS (3)
  1. REMICADE [Suspect]
     Indication: COLITIS ULCERATIVE
     Route: 042
     Dates: start: 2010
  2. REMICADE [Suspect]
     Indication: COLITIS ULCERATIVE
     Route: 042
     Dates: start: 2012, end: 2012
  3. PREDNISONE [Concomitant]
     Route: 065

REACTIONS (7)
  - Colitis ulcerative [Unknown]
  - Oropharyngeal pain [Recovering/Resolving]
  - Muscle tightness [Recovering/Resolving]
  - Limb discomfort [Recovering/Resolving]
  - Oedema peripheral [Recovering/Resolving]
  - Influenza like illness [Recovering/Resolving]
  - Hypokinesia [Recovering/Resolving]
